FAERS Safety Report 9323667 (Version 1)
Quarter: 2013Q2

REPORT INFORMATION
  Report Type: Spontaneous
  Country: JP (occurrence: JP)
  Receive Date: 20130603
  Receipt Date: 20130603
  Transmission Date: 20140414
  Serious: Yes (Hospitalization, Other)
  Sender: FDA-Public Use
  Company Number: PHHY2013JP055362

PATIENT
  Sex: Female

DRUGS (7)
  1. CO-DIOVAN [Suspect]
     Indication: HYPERTENSION
     Dosage: 1 DF,  (80 MG VALS AND 6.25 MG HCTZ), DAILY
     Route: 048
     Dates: end: 20130410
  2. CRESTOR [Concomitant]
     Dosage: 2.5 MG, UNK
     Route: 048
  3. LOXOMARIN [Concomitant]
     Dosage: 180 MG, UNK
     Route: 048
  4. METHYCOOL [Concomitant]
     Dosage: 1500 UG, UNK
     Route: 048
  5. REBAMIPIDE [Concomitant]
     Dosage: 300 MG, UNK
  6. LANTUS [Concomitant]
  7. NOVORAPID [Concomitant]

REACTIONS (2)
  - Fracture [Unknown]
  - Accident [Unknown]
